FAERS Safety Report 10419769 (Version 1)
Quarter: 2014Q3

REPORT INFORMATION
  Report Type: Spontaneous
  Country: US (occurrence: None)
  Receive Date: 20140827
  Receipt Date: 20140827
  Transmission Date: 20150326
  Serious: Yes (Hospitalization)
  Sender: FDA-Public Use
  Company Number: 2014SIL00001

PATIENT
  Age: 5 Year
  Sex: Male

DRUGS (3)
  1. CELLCEPT [Suspect]
     Active Substance: MYCOPHENOLATE MOFETIL\MYCOPHENOLATE MOFETIL HYDROCHLORIDE
  2. EPANED [Suspect]
     Active Substance: ENALAPRIL MALEATE
     Indication: NEPHROTIC SYNDROME
     Dates: start: 201407, end: 2014
  3. ORAPRED [Concomitant]
     Active Substance: PREDNISOLONE SODIUM PHOSPHATE

REACTIONS (8)
  - Swelling face [None]
  - Posterior reversible encephalopathy syndrome [None]
  - Convulsion [None]
  - Local swelling [None]
  - Swelling [None]
  - Hypertension [None]
  - Drug administration error [None]
  - Angioedema [None]

NARRATIVE: CASE EVENT DATE: 201408
